FAERS Safety Report 9285425 (Version 1)
Quarter: 2013Q2

REPORT INFORMATION
  Report Type: Spontaneous
  Country: US (occurrence: US)
  Receive Date: 20130513
  Receipt Date: 20130513
  Transmission Date: 20140414
  Serious: No
  Sender: FDA-Public Use
  Company Number: US-PFIZER INC-2013146751

PATIENT
  Age: 58 Year
  Sex: Female
  Weight: 63.49 kg

DRUGS (4)
  1. LYRICA [Suspect]
     Indication: NEURALGIA
     Dosage: 50 MG DAILY
     Dates: start: 20130508
  2. GABAPENTIN [Suspect]
     Indication: NEURALGIA
     Dosage: 300 MG IN MORNING, 600 MG AT NOON, 600 MG IN EVENING AND 1200 MG AT NIGHT, 4X/DAY
     Dates: start: 2011
  3. GABAPENTIN [Suspect]
     Dosage: 300 MG IN MORNING, 300 MG AT NOON, 300 MG IN EVENING AND 1200 MG AT NIGHT, 4X/DAY
  4. GABAPENTIN [Suspect]
     Dosage: UNK

REACTIONS (3)
  - Drug ineffective [Unknown]
  - Dizziness [Unknown]
  - Gastric disorder [Unknown]
